FAERS Safety Report 9361900 (Version 1)
Quarter: 2013Q2

REPORT INFORMATION
  Report Type: Spontaneous
  Country: FR (occurrence: FR)
  Receive Date: 20130621
  Receipt Date: 20130621
  Transmission Date: 20140414
  Serious: Yes (Death)
  Sender: FDA-Public Use
  Company Number: FR-GLAXOSMITHKLINE-B0899394A

PATIENT
  Age: 33 Year
  Sex: Male

DRUGS (3)
  1. ARIXTRA [Suspect]
     Indication: PERIPHERAL ISCHAEMIA
     Dosage: 7.5MG PER DAY
     Route: 065
     Dates: start: 20130518, end: 20130523
  2. KARDEGIC [Concomitant]
     Indication: PERIPHERAL ISCHAEMIA
     Dates: start: 20130518
  3. SUBUTEX [Concomitant]
     Indication: DRUG DEPENDENCE
     Dosage: 16MG PER DAY

REACTIONS (12)
  - Intracranial haematoma [Fatal]
  - Headache [Unknown]
  - Altered state of consciousness [Unknown]
  - Pupils unequal [Unknown]
  - Mydriasis [Unknown]
  - Neurological decompensation [Unknown]
  - Haematoma [Unknown]
  - Intracranial pressure increased [Unknown]
  - Coma [Unknown]
  - Brain herniation [Unknown]
  - Rash [Unknown]
  - Off label use [Unknown]
